FAERS Safety Report 18249857 (Version 1)
Quarter: 2020Q3

REPORT INFORMATION
  Report Type: Spontaneous
  Country: US (occurrence: US)
  Receive Date: 20200910
  Receipt Date: 20200910
  Transmission Date: 20201103
  Serious: Yes (Hospitalization)
  Sender: FDA-Public Use
  Company Number: US-NOVITIUMPHARMA-2020USNVP00047

PATIENT
  Age: 75 Year
  Sex: Male
  Weight: 57.7 kg

DRUGS (2)
  1. ACYCLOVIR. [Suspect]
     Active Substance: ACYCLOVIR
     Indication: HERPES ZOSTER REACTIVATION
  2. PREDNISONE. [Suspect]
     Active Substance: PREDNISONE
     Indication: HERPES ZOSTER REACTIVATION

REACTIONS (13)
  - Vomiting [Recovering/Resolving]
  - Oesophageal rupture [Recovering/Resolving]
  - Muscle contractions involuntary [Recovering/Resolving]
  - Disorientation [Recovering/Resolving]
  - Neurotoxicity [Recovering/Resolving]
  - Oesophageal perforation [Recovering/Resolving]
  - Muscular weakness [Recovering/Resolving]
  - Paralysis [Recovering/Resolving]
  - Hyporeflexia [Recovering/Resolving]
  - Hallucination [Recovering/Resolving]
  - Encephalopathy [Recovering/Resolving]
  - Pneumomediastinum [Recovering/Resolving]
  - Confusional state [Recovering/Resolving]
